FAERS Safety Report 7081346-8 (Version None)
Quarter: 2010Q4

REPORT INFORMATION
  Report Type: 
  Country: None (occurrence: None)
  Receive Date: 20101103
  Receipt Date: 20101027
  Transmission Date: 20110411
  Serious: Yes (Hospitalization, Other)
  Sender: FDA-Public Use
  Company Number: GB-GENZYME-CLOF-1001240

PATIENT
  Sex: Female

DRUGS (1)
  1. EVOLTRA [Suspect]
     Indication: ACUTE MYELOID LEUKAEMIA
     Dosage: UNK MG, QDX5
     Route: 065
     Dates: start: 20100828, end: 20100901

REACTIONS (4)
  - DIARRHOEA [None]
  - NEUTROPENIC SEPSIS [None]
  - SEPSIS [None]
  - THROMBOCYTOPENIA [None]
